FAERS Safety Report 10761762 (Version 3)
Quarter: 2015Q4

REPORT INFORMATION
  Report Type: Spontaneous
  Country: US (occurrence: US)
  Receive Date: 20150204
  Receipt Date: 20151202
  Transmission Date: 20160304
  Serious: Yes (Hospitalization, Other)
  Sender: FDA-Public Use
  Company Number: US-ACORDA-ACO_101728_2014

PATIENT
  Age: 66 Year
  Sex: Female
  Weight: 36.28 kg

DRUGS (1)
  1. AMPYRA [Suspect]
     Active Substance: DALFAMPRIDINE
     Indication: PRODUCT USED FOR UNKNOWN INDICATION
     Dosage: 10 MG, BID
     Route: 065

REACTIONS (13)
  - Multiple sclerosis [Unknown]
  - Spinal fusion surgery [Unknown]
  - Back injury [Unknown]
  - Dizziness [Unknown]
  - Intervertebral disc operation [Unknown]
  - Immune system disorder [Unknown]
  - Inflammation [Unknown]
  - Spinal osteoarthritis [Unknown]
  - Spinal column injury [Unknown]
  - Optic neuritis [Unknown]
  - Muscle spasticity [Unknown]
  - Asthenia [Unknown]
  - Fatigue [Unknown]

NARRATIVE: CASE EVENT DATE: 201110
